FAERS Safety Report 22310099 (Version 1)
Quarter: 2023Q2

REPORT INFORMATION
  Report Type: Spontaneous
  Country: ES (occurrence: ES)
  Receive Date: 20230511
  Receipt Date: 20230511
  Transmission Date: 20230721
  Serious: Yes (Hospitalization)
  Sender: FDA-Public Use
  Company Number: None

PATIENT
  Age: 87 Year
  Sex: Female

DRUGS (3)
  1. ENALAPRIL [Interacting]
     Active Substance: ENALAPRIL
     Indication: Cardiac failure
     Route: 065
     Dates: start: 20210629
  2. SPIRONOLACTONE [Interacting]
     Active Substance: SPIRONOLACTONE
     Indication: Cardiac failure
     Route: 065
     Dates: start: 20181011
  3. FUROSEMIDE [Interacting]
     Active Substance: FUROSEMIDE
     Indication: Product used for unknown indication
     Dosage: .5 DOSAGE FORMS DAILY; 1/2-0-0, 30 TABLETS
     Route: 065
     Dates: start: 20221116, end: 20230318

REACTIONS (2)
  - Acute kidney injury [Recovered/Resolved]
  - Drug interaction [Unknown]

NARRATIVE: CASE EVENT DATE: 20230318
